FAERS Safety Report 9222922 (Version 2)
Quarter: 2013Q2

REPORT INFORMATION
  Report Type: Report from Study
  Country: JP (occurrence: JP)
  Receive Date: 20130410
  Receipt Date: 20130624
  Transmission Date: 20140414
  Serious: Yes (Death, Other)
  Sender: FDA-Public Use
  Company Number: JP-ROCHE-1211073

PATIENT
  Sex: 0

DRUGS (1)
  1. ALTEPLASE [Suspect]
     Indication: ISCHAEMIC STROKE
     Route: 065

REACTIONS (5)
  - Brain herniation [Fatal]
  - Cerebral infarction [Fatal]
  - Haemorrhage intracranial [Unknown]
  - Drug ineffective [Unknown]
  - Ischaemic stroke [Unknown]
